FAERS Safety Report 11832881 (Version 3)
Quarter: 2015Q4

REPORT INFORMATION
  Report Type: Spontaneous
  Country: IT (occurrence: IT)
  Receive Date: 20151214
  Receipt Date: 20151230
  Transmission Date: 20160305
  Serious: Yes (Hospitalization)
  Sender: FDA-Public Use
  Company Number: IT-PFIZER INC-2015442985

PATIENT
  Age: 46 Year
  Sex: Female

DRUGS (5)
  1. CYMBALTA [Suspect]
     Active Substance: DULOXETINE HYDROCHLORIDE
     Dosage: 240 MG, WEEKLY
     Route: 048
     Dates: start: 20151117, end: 20151117
  2. ALPRAZOLAM. [Suspect]
     Active Substance: ALPRAZOLAM
     Dosage: 100 MG, TOTAL
     Route: 048
     Dates: start: 20151117, end: 20151117
  3. TAVOR [Suspect]
     Active Substance: LORAZEPAM
     Dosage: 3 MG, TOTAL
     Route: 048
     Dates: start: 20151117, end: 20151117
  4. TRAMADOL HYDROCHLORIDE. [Concomitant]
     Active Substance: TRAMADOL HYDROCHLORIDE
     Dosage: UNK
  5. SINCRONIL [Suspect]
     Active Substance: TOPIRAMATE
     Dosage: 800 MG, TOTAL
     Route: 048
     Dates: start: 20151117, end: 20151117

REACTIONS (2)
  - Bradykinesia [Recovered/Resolved]
  - Drug abuse [Recovered/Resolved]

NARRATIVE: CASE EVENT DATE: 20151117
